FAERS Safety Report 25374812 (Version 1)
Quarter: 2025Q2

REPORT INFORMATION
  Report Type: Spontaneous
  Country: US (occurrence: None)
  Receive Date: 20250528
  Receipt Date: 20250528
  Transmission Date: 20250717
  Serious: No
  Sender: FDA-CTU
  Company Number: None

PATIENT
  Age: 51 Year
  Sex: Female
  Weight: 82.8 kg

DRUGS (3)
  1. PYRIDOXINE\TIRZEPATIDE [Suspect]
     Active Substance: PYRIDOXINE\TIRZEPATIDE
     Indication: Weight decreased
     Route: 058
     Dates: start: 20250515, end: 20250522
  2. SYNTHROID [Concomitant]
     Active Substance: LEVOTHYROXINE SODIUM
  3. Woman^s multivitamin [Concomitant]

REACTIONS (3)
  - Diarrhoea [None]
  - Weight decreased [None]
  - Vomiting [None]

NARRATIVE: CASE EVENT DATE: 20250515
